FAERS Safety Report 9126381 (Version 1)
Quarter: 2013Q1

REPORT INFORMATION
  Report Type: Report from Study
  Country: US (occurrence: US)
  Receive Date: 20130117
  Receipt Date: 20130117
  Transmission Date: 20140127
  Serious: Yes (Hospitalization)
  Sender: FDA-Public Use
  Company Number: US-ROCHE-1179199

PATIENT
  Age: 45 Year
  Sex: Female
  Weight: 75.82 kg

DRUGS (2)
  1. XOLAIR [Suspect]
     Indication: ASTHMA
     Route: 058
     Dates: start: 20120918
  2. PREDNISONE [Concomitant]
     Indication: ASTHMA
     Route: 048

REACTIONS (2)
  - Pneumonia [Recovering/Resolving]
  - Weight increased [Not Recovered/Not Resolved]
